FAERS Safety Report 10065064 (Version 5)
Quarter: 2014Q4

REPORT INFORMATION
  Report Type: Report from Study
  Country: US (occurrence: US)
  Receive Date: 20140408
  Receipt Date: 20141104
  Transmission Date: 20150528
  Serious: Yes (Hospitalization, Other)
  Sender: FDA-Public Use
  Company Number: US-ACTELION-A-NJ2014-96839

PATIENT
  Age: 37 Year
  Sex: Female

DRUGS (5)
  1. VELETRI [Suspect]
     Active Substance: EPOPROSTENOL
     Dosage: 7.5 NG/KG, PER MIN
     Route: 042
     Dates: start: 20140217
  2. COUMADIN [Concomitant]
     Active Substance: WARFARIN SODIUM
  3. REVATIO [Concomitant]
     Active Substance: SILDENAFIL CITRATE
  4. LETAIRIS [Concomitant]
     Active Substance: AMBRISENTAN
  5. VELETRI [Suspect]
     Active Substance: EPOPROSTENOL
     Indication: PULMONARY ARTERIAL HYPERTENSION
     Dosage: 14 NG/KG, PER MIN
     Route: 042
     Dates: start: 20140219

REACTIONS (11)
  - Central venous catheterisation [Unknown]
  - Application site erythema [Recovering/Resolving]
  - Chest pain [Recovering/Resolving]
  - Migraine [Recovering/Resolving]
  - Catheter site pruritus [Unknown]
  - Foot fracture [Recovering/Resolving]
  - Pulmonary arterial hypertension [Unknown]
  - Acne [Recovering/Resolving]
  - Transplant evaluation [Unknown]
  - Chest discomfort [Recovering/Resolving]
  - Hypersensitivity [Unknown]

NARRATIVE: CASE EVENT DATE: 20140324
